FAERS Safety Report 4991736-2 (Version None)
Quarter: 2006Q2

REPORT INFORMATION
  Report Type: 
  Country: None (occurrence: None)
  Receive Date: 20060502
  Receipt Date: 20060416
  Transmission Date: 20061013
  Serious: Yes (Hospitalization)
  Sender: FDA-Public Use
  Company Number: 2006RL000136

PATIENT
  Age: 26 Year
  Sex: Female
  Weight: 46 kg

DRUGS (2)
  1. OMACOR [Suspect]
     Indication: HYPERTRIGLYCERIDAEMIA
  2. FERROUS SULFATE TAB [Concomitant]

REACTIONS (6)
  - ABDOMINAL PAIN UPPER [None]
  - ABDOMINAL TENDERNESS [None]
  - CAESAREAN SECTION [None]
  - DRUG EXPOSURE DURING PREGNANCY [None]
  - IRON DEFICIENCY ANAEMIA [None]
  - MALAISE [None]
